FAERS Safety Report 18469034 (Version 1)
Quarter: 2020Q4

REPORT INFORMATION
  Report Type: Spontaneous
  Country: US (occurrence: US)
  Receive Date: 20201105
  Receipt Date: 20201105
  Transmission Date: 20210114
  Serious: Yes (Other)
  Sender: FDA-Public Use
  Company Number: None

PATIENT
  Sex: Male
  Weight: 77.1 kg

DRUGS (7)
  1. VEKLURY [Suspect]
     Active Substance: REMDESIVIR
     Indication: COVID-19
     Route: 041
     Dates: start: 20200614, end: 20200617
  2. METHYLPREDNISOLONE. [Concomitant]
     Active Substance: METHYLPREDNISOLONE
     Dates: start: 20200615, end: 20200618
  3. BUDESONIDE. [Concomitant]
     Active Substance: BUDESONIDE
     Dates: start: 20200615, end: 20200619
  4. COMBIVENT RESPIMAT [Concomitant]
     Active Substance: ALBUTEROL SULFATE\IPRATROPIUM BROMIDE
     Dates: start: 20200615, end: 20200619
  5. ARFORMOTEROL [Concomitant]
     Active Substance: ARFORMOTEROL
     Dates: start: 20200615, end: 20200619
  6. MEROPENEM. [Concomitant]
     Active Substance: MEROPENEM
     Dates: start: 20200614, end: 20200616
  7. ACETAMINOPHEN. [Concomitant]
     Active Substance: ACETAMINOPHEN
     Dates: start: 20200612, end: 20200619

REACTIONS (2)
  - Alanine aminotransferase increased [None]
  - Therapy interrupted [None]
